FAERS Safety Report 6765959-6 (Version None)
Quarter: 2010Q2

REPORT INFORMATION
  Report Type: 
  Country: None (occurrence: None)
  Receive Date: 20100611
  Receipt Date: 20100602
  Transmission Date: 20101027
  Serious: Yes (Death)
  Sender: FDA-Public Use
  Company Number: A0862430A

PATIENT
  Age: 59 Year
  Sex: Female

DRUGS (3)
  1. ARZERRA [Suspect]
     Dosage: 2000MG WEEKLY
     Route: 042
     Dates: start: 20100219
  2. ZOFRAN [Suspect]
     Indication: PROPHYLAXIS OF NAUSEA AND VOMITING
     Dosage: 20MG AS REQUIRED
     Route: 042
     Dates: start: 20060101
  3. NO CONCURRENT MEDICATION [Concomitant]

REACTIONS (1)
  - CHRONIC LYMPHOCYTIC LEUKAEMIA [None]
